FAERS Safety Report 4577229-5 (Version None)
Quarter: 2005Q1

REPORT INFORMATION
  Report Type: 
  Country: None (occurrence: None)
  Receive Date: 20050209
  Receipt Date: 20050126
  Transmission Date: 20050727
  Serious: Yes (Death, Hospitalization)
  Sender: FDA-Public Use
  Company Number: 2004AL000721

PATIENT
  Sex: Female

DRUGS (9)
  1. THEOPHYLLINE ELIXIR LIQUID [Suspect]
     Dosage: PO
     Route: 048
  2. ACETAMINOPHEN/HYDROCODONE [Suspect]
     Dosage: PO
     Route: 048
  3. MIRTAZAPINE [Suspect]
     Dosage: PO
     Route: 048
  4. SERTRALINE HCL [Suspect]
     Dosage: PO
     Route: 048
  5. QUETIAPINE FUMARATE [Suspect]
     Dosage: PO
     Route: 048
  6. DOXYCYCLINE [Suspect]
     Dosage: PO
     Route: 048
  7. LANSOPRAZOLE [Suspect]
     Dosage: PO
     Route: 048
  8. LABETALOL HCL [Suspect]
     Dosage: PO
     Route: 048
  9. PROCHLORPERAZINE [Suspect]
     Dosage: PO
     Route: 048

REACTIONS (8)
  - COMPLETED SUICIDE [None]
  - ELECTROCARDIOGRAM POOR R-WAVE PROGRESSION [None]
  - HYPOTENSION [None]
  - MULTIPLE DRUG OVERDOSE [None]
  - PNEUMONIA [None]
  - SEDATION [None]
  - SEPTIC SHOCK [None]
  - TACHYCARDIA [None]
